FAERS Safety Report 5222840-1 (Version None)
Quarter: 2007Q1

REPORT INFORMATION
  Report Type: 
  Country: None (occurrence: None)
  Receive Date: 20070129
  Receipt Date: 20070125
  Transmission Date: 20070707
  Serious: Yes (Other)
  Sender: FDA-Public Use
  Company Number: JP-JPN-A200700198

PATIENT
  Age: 78 Year
  Sex: Male

DRUGS (4)
  1. VALTREX [Suspect]
     Indication: HERPES ZOSTER
     Dosage: 1000MG THREE TIMES PER DAY
     Route: 048
     Dates: start: 20070119, end: 20070119
  2. CYANOCOBALAMIN [Concomitant]
     Dosage: 1.5MG PER DAY
     Route: 048
  3. UNKNOWN MEDICATION [Concomitant]
     Dosage: 75MG PER DAY
     Route: 048
  4. ISALON [Concomitant]
     Route: 048

REACTIONS (4)
  - DELIRIUM [None]
  - DEPRESSED LEVEL OF CONSCIOUSNESS [None]
  - DIZZINESS [None]
  - SOMNOLENCE [None]
